FAERS Safety Report 19183864 (Version 1)
Quarter: 2021Q2

REPORT INFORMATION
  Report Type: Spontaneous
  Country: US (occurrence: US)
  Receive Date: 20210426
  Receipt Date: 20210426
  Transmission Date: 20210717
  Serious: Yes (Other)
  Sender: FDA-Public Use
  Company Number: None

PATIENT
  Age: 65 Year
  Sex: Male
  Weight: 84.92 kg

DRUGS (2)
  1. OLANZAPINE. [Suspect]
     Active Substance: OLANZAPINE
     Indication: AGGRESSION
     Dates: start: 20210114, end: 20210119
  2. OLANZAPINE. [Suspect]
     Active Substance: OLANZAPINE
     Indication: AGGRESSION
     Dates: start: 20210104, end: 20210127

REACTIONS (3)
  - Contusion [None]
  - Aggression [None]
  - Parkinsonian gait [None]

NARRATIVE: CASE EVENT DATE: 20210117
